FAERS Safety Report 21964858 (Version 7)
Quarter: 2025Q4

REPORT INFORMATION
  Report Type: Report from Study
  Country: JP (occurrence: JP)
  Receive Date: 20230207
  Receipt Date: 20251224
  Transmission Date: 20260117
  Serious: Yes (Hospitalization)
  Sender: SANOFI AVENTIS
  Company Number: JP-SA-2022SA272392

PATIENT
  Age: 48 Year
  Sex: Male
  Weight: 71.5 kg

DRUGS (17)
  1. DUPILUMAB [Suspect]
     Active Substance: DUPILUMAB
     Indication: Dermatitis atopic
     Dosage: 300 MG, QOW
     Route: 058
     Dates: start: 20220421, end: 20250710
  2. DUPILUMAB [Suspect]
     Active Substance: DUPILUMAB
     Dosage: 600 MG, 1X
     Route: 058
     Dates: start: 20220407, end: 20220407
  3. OLOPATADINE HYDROCHLORIDE [Concomitant]
     Active Substance: OLOPATADINE HYDROCHLORIDE
     Indication: Dermatitis atopic
     Dosage: TOTAL DAILY DOSE: 10 MG
     Route: 048
     Dates: start: 20210428
  4. LORATADINE [Concomitant]
     Active Substance: LORATADINE
     Indication: Dermatitis atopic
     Dosage: TOTAL DAILY DOSE: 10 MG
     Route: 048
     Dates: start: 20210428
  5. DELGOCITINIB [Concomitant]
     Active Substance: DELGOCITINIB
     Indication: Dermatitis atopic
     Dosage: TOTAL DAILY DOSE: 2
     Route: 003
     Dates: start: 20210428, end: 20230111
  6. DELGOCITINIB [Concomitant]
     Active Substance: DELGOCITINIB
     Dosage: TOTAL DAILY DOSE: 2, UNIT: OTHER
     Route: 003
     Dates: start: 20250109
  7. DIFLORASONE DIACETATE [Concomitant]
     Active Substance: DIFLORASONE DIACETATE
     Indication: Dermatitis atopic
     Dosage: TOTAL DAILY DOSE: 2
     Route: 003
     Dates: start: 20210428
  8. PETROLATUM [Concomitant]
     Active Substance: PETROLATUM
     Indication: Dermatitis atopic
     Dosage: TOTAL DAILY DOSE: 2
     Route: 003
     Dates: start: 20210428
  9. BETAMETHASONE DIPROPIONATE [Concomitant]
     Active Substance: BETAMETHASONE DIPROPIONATE
     Indication: Dermatitis atopic
     Dosage: TOTAL DAILY DOSE: 2
     Route: 003
     Dates: start: 20210819, end: 20230111
  10. DEXAMETHASONE DIPROPIONATE [Concomitant]
     Active Substance: DEXAMETHASONE DIPROPIONATE
     Indication: Dermatitis atopic
     Dosage: TOTAL DAILY DOSE: 2
     Route: 003
     Dates: start: 20210819, end: 20230111
  11. DEXAMETHASONE DIPROPIONATE [Concomitant]
     Active Substance: DEXAMETHASONE DIPROPIONATE
     Dosage: TOTAL DAILY DOSE: 2, UNIT: OTHER
     Route: 003
     Dates: start: 20250109
  12. LANSOPRAZOLE [Concomitant]
     Active Substance: LANSOPRAZOLE
     Indication: Prophylaxis
     Dosage: 15 MG/DAY
     Route: 048
     Dates: start: 20240221, end: 20240224
  13. LANSOPRAZOLE [Concomitant]
     Active Substance: LANSOPRAZOLE
     Dosage: 15 MG/DAY
     Route: 048
     Dates: start: 20221203, end: 20221205
  14. LANSOPRAZOLE [Concomitant]
     Active Substance: LANSOPRAZOLE
     Dosage: 15 MG/DAY
     Route: 048
     Dates: start: 20230302, end: 20230304
  15. BETAMETHASONE BUTYRATE PROPIONATE [Concomitant]
     Active Substance: BETAMETHASONE BUTYRATE PROPIONATE
     Indication: Dermatitis atopic
     Dosage: 2 (UNIT: OTHER)/DAY
     Route: 003
     Dates: start: 20210819, end: 20230111
  16. MAGNESIUM OXIDE [Concomitant]
     Active Substance: MAGNESIUM OXIDE
     Indication: Prophylaxis
     Dosage: 500 MG/DAY
     Route: 048
     Dates: start: 20221201, end: 20221215
  17. SUVOREXANT [Concomitant]
     Active Substance: SUVOREXANT
     Indication: Prophylaxis
     Dosage: 15 MG/DAY
     Route: 048
     Dates: start: 20221204, end: 20221210

REACTIONS (3)
  - Myelitis [Not Recovered/Not Resolved]
  - Conjunctivitis [Recovered/Resolved]
  - Conjunctivitis allergic [Recovered/Resolved]

NARRATIVE: CASE EVENT DATE: 20220706
